FAERS Safety Report 7409880-9 (Version None)
Quarter: 2011Q2

REPORT INFORMATION
  Report Type: 
  Country: None (occurrence: None)
  Receive Date: 20110412
  Receipt Date: 20110329
  Transmission Date: 20111010
  Serious: Yes (Hospitalization)
  Sender: FDA-Public Use
  Company Number: JP-CELGENEUS-087-21880-10091772

PATIENT
  Sex: Male
  Weight: 76.5 kg

DRUGS (32)
  1. LENADEX [Suspect]
     Indication: MULTIPLE MYELOMA
     Dosage: 8 MILLIGRAM
     Route: 048
     Dates: start: 20100820, end: 20100908
  2. JUVELA [Concomitant]
     Indication: PROPHYLAXIS
     Dosage: 150 MILLIGRAM
     Route: 048
     Dates: start: 20100820, end: 20101212
  3. BAKTAR [Concomitant]
     Indication: PROPHYLAXIS
     Dosage: 480 MILLIGRAM
     Route: 048
     Dates: start: 20100820, end: 20101212
  4. NORVASC [Concomitant]
     Indication: HYPERTENSION
     Dosage: 5 MILLIGRAM
     Route: 048
     Dates: start: 20101015, end: 20101212
  5. ASPIRIN [Concomitant]
     Indication: PROPHYLAXIS
     Dosage: 100 MILLIGRAM
     Route: 048
     Dates: start: 20101015, end: 20101212
  6. LENADEX [Suspect]
     Dosage: 4 MILLIGRAM
     Route: 048
     Dates: start: 20101213, end: 20110101
  7. ZOMETA [Concomitant]
     Indication: MULTIPLE MYELOMA
     Dosage: 4 MILLIGRAM
     Route: 041
     Dates: start: 20100820, end: 20100820
  8. ALDACTONE [Concomitant]
     Indication: HYPERTENSION
     Dosage: 25 MILLIGRAM
     Route: 048
     Dates: start: 20101015, end: 20101212
  9. REVLIMID [Suspect]
     Dosage: 10 MILLIGRAM
     Route: 048
     Dates: start: 20101015, end: 20101104
  10. SELBEX [Concomitant]
     Indication: PROPHYLAXIS
     Dosage: 150 MILLIGRAM
     Route: 048
     Dates: start: 20100820, end: 20101212
  11. ZOMETA [Concomitant]
     Dosage: 4 MILLIGRAM
     Route: 041
     Dates: start: 20101115, end: 20101115
  12. ORGARAN [Concomitant]
     Indication: ILL-DEFINED DISORDER
     Dosage: 1250 UNITS
     Route: 051
     Dates: start: 20110226, end: 20110303
  13. LENADEX [Suspect]
     Dosage: 4 MILLIGRAM
     Route: 048
     Dates: start: 20110111, end: 20110114
  14. METHYCOBAL [Concomitant]
     Indication: PROPHYLAXIS
     Dosage: 1500 MICROGRAM
     Route: 048
     Dates: start: 20100820, end: 20101212
  15. ZOMETA [Concomitant]
     Dosage: 4 MILLIGRAM
     Route: 041
     Dates: start: 20101213, end: 20110302
  16. DIOVAN [Concomitant]
     Indication: HYPERTENSION
     Dosage: 80 MILLIGRAM
     Route: 048
     Dates: start: 20110217, end: 20110322
  17. REVLIMID [Suspect]
     Dosage: 10 MILLIGRAM
     Route: 048
     Dates: start: 20101213, end: 20110102
  18. REVLIMID [Suspect]
     Dosage: 10 MILLIGRAM
     Route: 048
     Dates: start: 20110111, end: 20110131
  19. LENADEX [Suspect]
     Dosage: 4 MILLIGRAM
     Route: 048
     Dates: start: 20101015, end: 20101103
  20. LENADEX [Suspect]
     Dosage: 4 MILLIGRAM
     Route: 048
     Dates: start: 20101115, end: 20101204
  21. LASIX [Concomitant]
     Indication: ILL-DEFINED DISORDER
     Dosage: 40 MILLIGRAM
     Route: 048
     Dates: start: 20100820, end: 20101212
  22. REVLIMID [Suspect]
     Dosage: 10 MILLIGRAM
     Route: 048
     Dates: start: 20101115, end: 20101205
  23. LENADEX [Suspect]
     Dosage: 4 MILLIGRAM
     Route: 048
     Dates: start: 20110207, end: 20110210
  24. ZYLORIC [Concomitant]
     Indication: ILL-DEFINED DISORDER
     Dosage: 100 MILLIGRAM
     Route: 048
     Dates: start: 20100820, end: 20101212
  25. PURSENNID [Concomitant]
     Indication: ILL-DEFINED DISORDER
     Dosage: 24 MILLIGRAM
     Route: 048
     Dates: start: 20101015, end: 20110322
  26. WARFARIN [Concomitant]
     Indication: ILL-DEFINED DISORDER
     Dosage: 2 MILLIGRAM
     Route: 048
     Dates: start: 20110301, end: 20110322
  27. HEPARIN NA LOCK [Concomitant]
     Indication: ILL-DEFINED DISORDER
     Dosage: 10 UNITS
     Route: 051
     Dates: start: 20110215, end: 20110217
  28. REVLIMID [Suspect]
     Indication: MULTIPLE MYELOMA
     Dosage: 10 MILLIGRAM
     Route: 048
     Dates: start: 20100820, end: 20100909
  29. REVLIMID [Suspect]
     Dosage: 10 MILLIGRAM
     Route: 048
     Dates: start: 20110207, end: 20110215
  30. PARIET [Concomitant]
     Indication: PROPHYLAXIS
     Dosage: 10 MILLIGRAM
     Route: 048
     Dates: start: 20100820, end: 20101212
  31. ZOMETA [Concomitant]
     Dosage: 4 MILLIGRAM
     Route: 041
     Dates: start: 20101015, end: 20101015
  32. NEWTOLIDE [Concomitant]
     Indication: HYPERTENSION
     Dosage: 12.5 MILLIGRAM
     Route: 048
     Dates: start: 20110217, end: 20110322

REACTIONS (4)
  - NASOPHARYNGITIS [None]
  - INTERSTITIAL LUNG DISEASE [None]
  - INFLUENZA [None]
  - DELIRIUM [None]
